FAERS Safety Report 9829045 (Version 4)
Quarter: 2016Q3

REPORT INFORMATION
  Report Type: Report from Study
  Country: CA (occurrence: CA)
  Receive Date: 20140118
  Receipt Date: 20160906
  Transmission Date: 20161109
  Serious: Yes (Hospitalization, Other)
  Sender: FDA-Public Use
  Company Number: CA-ROCHE-1334322

PATIENT
  Age: 48 Year
  Sex: Female
  Weight: 71.7 kg

DRUGS (14)
  1. CELEBREX [Concomitant]
     Active Substance: CELECOXIB
     Route: 048
  2. ACETAMINOPHEN. [Concomitant]
     Active Substance: ACETAMINOPHEN
     Route: 048
     Dates: start: 20160817, end: 20160817
  3. ACETAMINOPHEN. [Concomitant]
     Active Substance: ACETAMINOPHEN
     Route: 048
     Dates: start: 20160831
  4. METHYLPREDNISOLONE. [Concomitant]
     Active Substance: METHYLPREDNISOLONE
     Route: 042
     Dates: start: 20090724
  5. RITUXAN [Suspect]
     Active Substance: RITUXIMAB
     Dosage: DAY 1, 15?MOST RECENT DOSE 31/AUG/2016
     Route: 042
     Dates: start: 20160817
  6. TYLENOL EXTRA STRENGTH [Concomitant]
     Active Substance: ACETAMINOPHEN
  7. DIPHENHYDRAMINE HCL [Concomitant]
     Active Substance: DIPHENHYDRAMINE HYDROCHLORIDE
     Route: 048
     Dates: start: 20160817
  8. NEXIUM [Concomitant]
     Active Substance: ESOMEPRAZOLE MAGNESIUM
     Dosage: EVEREY DAY
     Route: 048
  9. DIPHENHYDRAMINE HCL [Concomitant]
     Active Substance: DIPHENHYDRAMINE HYDROCHLORIDE
     Indication: PREMEDICATION
     Route: 048
     Dates: start: 20090724
  10. METHOTREXATE. [Concomitant]
     Active Substance: METHOTREXATE
     Route: 065
     Dates: start: 1996, end: 1998
  11. METHYLPREDNISOLONE. [Concomitant]
     Active Substance: METHYLPREDNISOLONE
     Route: 042
     Dates: start: 20160817
  12. RITUXAN [Suspect]
     Active Substance: RITUXIMAB
     Indication: RHEUMATOID ARTHRITIS
     Dosage: RECEIVED RITUXIMAB INFUSION ?24/JUL/2009 (1000 DAY 1, 15 (1ST RPAP DOSE)?23/AUG/2013, 24/FEB/2014
     Route: 042
     Dates: start: 2006, end: 20140825
  13. ACETAMINOPHEN. [Concomitant]
     Active Substance: ACETAMINOPHEN
     Indication: PREMEDICATION
     Route: 048
     Dates: start: 20090724
  14. ACTEMRA [Suspect]
     Active Substance: TOCILIZUMAB
     Indication: RHEUMATOID ARTHRITIS
     Route: 042
     Dates: start: 20151008, end: 20160510

REACTIONS (17)
  - Menstrual disorder [Unknown]
  - Vaginal infection [Recovered/Resolved with Sequelae]
  - Abdominal pain [Unknown]
  - Abdominal pain [Recovered/Resolved]
  - Salpingitis [Recovered/Resolved with Sequelae]
  - Drug effect decreased [Unknown]
  - Tubo-ovarian abscess [Unknown]
  - Immunodeficiency [Unknown]
  - Feeling abnormal [Not Recovered/Not Resolved]
  - Pelvic inflammatory disease [Unknown]
  - Ovarian mass [Unknown]
  - Hypotension [Unknown]
  - Headache [Recovered/Resolved]
  - Intervertebral disc protrusion [Unknown]
  - Heart rate decreased [Unknown]
  - Oropharyngeal pain [Not Recovered/Not Resolved]
  - Nausea [Recovered/Resolved]

NARRATIVE: CASE EVENT DATE: 2012
